FAERS Safety Report 6788880-6 (Version None)
Quarter: 2010Q2

REPORT INFORMATION
  Report Type: 
  Country: None (occurrence: None)
  Receive Date: 20100623
  Receipt Date: 20080609
  Transmission Date: 20101027
  Serious: No
  Sender: FDA-Public Use
  Company Number: US-PFIZER INC-2008048497

PATIENT
  Sex: Female

DRUGS (2)
  1. GEODON [Suspect]
  2. EFFEXOR XR [Concomitant]

REACTIONS (1)
  - DYSTONIA [None]
